FAERS Safety Report 6021863-2 (Version None)
Quarter: 2008Q4

REPORT INFORMATION
  Report Type: 
  Country: None (occurrence: None)
  Receive Date: 20081229
  Receipt Date: 20081217
  Transmission Date: 20090506
  Serious: Yes (Other)
  Sender: FDA-Public Use
  Company Number: US-ROCHE-603716

PATIENT
  Age: 72 Year
  Sex: Female

DRUGS (6)
  1. IBANDRONIC ACID [Suspect]
     Indication: OSTEOPENIA
     Route: 065
     Dates: end: 20080601
  2. BYSTOLIC [Concomitant]
     Dates: start: 20081101
  3. HYDROCHLOROTHIAZIDE [Concomitant]
  4. DIOVAN [Concomitant]
  5. VITAMIN [Concomitant]
  6. FISH OIL [Concomitant]

REACTIONS (5)
  - ARTHRITIS [None]
  - BACK PAIN [None]
  - DYSPHAGIA [None]
  - THYROID CYST [None]
  - THYROID NEOPLASM [None]
